FAERS Safety Report 9519053 (Version 1)
Quarter: 2013Q1

REPORT INFORMATION
  Report Type: Spontaneous
  Country: US (occurrence: None)
  Receive Date: 20130305
  Receipt Date: 20130305
  Transmission Date: 20140127
  Serious: Yes (Hospitalization, Other)
  Sender: FDA-Public Use
  Company Number: 163-21880-12011001

PATIENT
  Age: 48 Year
  Sex: Female
  Weight: 98.43 kg

DRUGS (13)
  1. REVLIMID (LENALIDOMIDE) (25 MILLIGRAM, CAPSULES)? [Suspect]
     Indication: PLASMA CELL MYELOMA
     Dosage: 25 MG, 1 IN 1 D, PO
     Route: 048
     Dates: start: 20111205, end: 20120106
  2. OXYCONTIN (OXYCODONE HYDROCHLORIDE) (UNKNOWN) [Concomitant]
  3. VICODIN (VICODIN) (UNKNOWN) [Concomitant]
  4. LISINOPRIL (LISINOPRIL) (UNKNOWN) [Concomitant]
  5. METOPROLOL (METOPROLOL) (UNKNOWN) [Concomitant]
  6. MULTIVITAMINS (MULTIVITAMINS) (UNKNOWN) [Concomitant]
  7. VITAMIN D (ERGOCALCIFEROL) (UNKNOWN) [Concomitant]
  8. CALCIUM (CALCIUM) (UNKNOWN) [Concomitant]
  9. MAGNESIUM (MAGNESIUM) (UNKNOWN) [Concomitant]
  10. VELCADE (UNKNOWN) [Concomitant]
  11. ZOLEDRONIC ACID (ZOLEDRONIC ACID) (UNKNOWN) [Concomitant]
  12. DEXAMETHASONE (DEXAMETHASONE) (UNKNOWN) [Concomitant]
  13. DOXIL (DOXORUBICIN HYDROCHLORIDE) (UNKNOWN) [Concomitant]

REACTIONS (3)
  - Neutrophil count decreased [None]
  - Plasma cell myeloma [None]
  - Drug ineffective [None]
